FAERS Safety Report 14783133 (Version 1)
Quarter: 2018Q2

REPORT INFORMATION
  Report Type: Spontaneous
  Country: US (occurrence: US)
  Receive Date: 20180420
  Receipt Date: 20180420
  Transmission Date: 20180711
  Serious: No
  Sender: FDA-Public Use
  Company Number: US-ASTRAZENECA-2018SE36912

PATIENT
  Age: 36 Year
  Sex: Female
  Weight: 57.6 kg

DRUGS (1)
  1. FASENRA [Suspect]
     Active Substance: BENRALIZUMAB
     Indication: ASTHMA
     Dosage: 30 MG ONCE EVERY 4 WEEKS FOR THE FIRST 3 DOSES, AND THEN ONCE EVERY 8 WEEKS
     Route: 058
     Dates: start: 20180321

REACTIONS (2)
  - Dyspnoea [Not Recovered/Not Resolved]
  - Rash [Not Recovered/Not Resolved]

NARRATIVE: CASE EVENT DATE: 20180321
